FAERS Safety Report 12335684 (Version 1)
Quarter: 2016Q2

REPORT INFORMATION
  Report Type: Other
  Country: GB (occurrence: GB)
  Receive Date: 20160505
  Receipt Date: 20160505
  Transmission Date: 20160815
  Serious: Yes (Other)
  Sender: FDA-Public Use
  Company Number: GB-DEXPHARM-20160760

PATIENT
  Age: 73 Year
  Sex: Male

DRUGS (4)
  1. ASPIRIN. [Concomitant]
     Active Substance: ASPIRIN
  2. GLICAZIDE [Concomitant]
     Active Substance: GLICLAZIDE
  3. LEVETIRACETAM. [Suspect]
     Active Substance: LEVETIRACETAM
     Indication: SEIZURE
  4. LOSARTAN. [Suspect]
     Active Substance: LOSARTAN

REACTIONS (1)
  - Nephritis allergic [Recovered/Resolved]
